FAERS Safety Report 9118781 (Version 1)
Quarter: 2013Q1

REPORT INFORMATION
  Report Type: Spontaneous
  Country: SE (occurrence: SE)
  Receive Date: 20130226
  Receipt Date: 20130226
  Transmission Date: 20140127
  Serious: Yes (Other)
  Sender: FDA-Public Use
  Company Number: SE-US-EMD SERONO, INC.-7171251

PATIENT
  Age: 36 Year
  Sex: Female
  Weight: 71 kg

DRUGS (5)
  1. OVITRELLE [Suspect]
     Indication: IN VITRO FERTILISATION
     Route: 058
     Dates: start: 20121017, end: 20121017
  2. OVITRELLE [Suspect]
     Indication: OVULATION INDUCTION
  3. PUREGON [Concomitant]
     Indication: INFERTILITY FEMALE
     Route: 058
     Dates: start: 20121005, end: 20121016
  4. SYNARELA [Concomitant]
     Indication: PRODUCT USED FOR UNKNOWN INDICATION
     Route: 045
  5. SYNARELA [Concomitant]
     Route: 045
     Dates: start: 20121005, end: 20121016

REACTIONS (1)
  - Drug ineffective [Recovered/Resolved]
